FAERS Safety Report 11369391 (Version 1)
Quarter: 2015Q3

REPORT INFORMATION
  Report Type: Spontaneous
  Country: US (occurrence: US)
  Receive Date: 20150812
  Receipt Date: 20150812
  Transmission Date: 20151125
  Serious: No
  Sender: FDA-Public Use
  Company Number: US-JNJFOC-20150314638

PATIENT

DRUGS (2)
  1. USTEKINUMAB [Suspect]
     Active Substance: USTEKINUMAB
     Indication: ACUTE GRAFT VERSUS HOST DISEASE
     Route: 058
  2. USTEKINUMAB [Suspect]
     Active Substance: USTEKINUMAB
     Indication: ACUTE GRAFT VERSUS HOST DISEASE
     Dosage: FOR WEIGHT GREATER THAN 100 KILOGRAMS
     Route: 058

REACTIONS (1)
  - Product use issue [Unknown]
